FAERS Safety Report 22928027 (Version 2)
Quarter: 2023Q4

REPORT INFORMATION
  Report Type: Spontaneous
  Country: GR (occurrence: GR)
  Receive Date: 20230911
  Receipt Date: 20231012
  Transmission Date: 20240110
  Serious: Yes (Other)
  Sender: FDA-Public Use
  Company Number: GR-Vifor (International) Inc.-VIT-2023-04062

PATIENT
  Sex: Female

DRUGS (10)
  1. VELPHORO [Suspect]
     Active Substance: SUCROFERRIC OXYHYDROXIDE
     Indication: Blood phosphorus abnormal
     Route: 048
     Dates: start: 20190528
  2. ALVOFER [Concomitant]
     Indication: Anaemia
     Dosage: DURING EVERY HEMODIALYSIS SESSION
     Route: 042
     Dates: start: 20190117, end: 20220820
  3. EPOETIN-A [Concomitant]
     Indication: Anaemia
     Dosage: 10,000 IU/PER HD (HEMODIALYSIS). ONGOING
     Route: 058
     Dates: start: 20191117
  4. PARICALCITOL [Concomitant]
     Active Substance: PARICALCITOL
     Indication: Hyperparathyroidism secondary
     Dosage: ONGOING
     Route: 042
     Dates: start: 2021
  5. NEUROBION [Concomitant]
     Active Substance: CYANOCOBALAMIN\PYRIDOXINE\THIAMINE
     Indication: Anaemia
     Dosage: 1 AMP. ONGOING
     Route: 042
     Dates: start: 2021
  6. LEVOCARNITINE [Concomitant]
     Active Substance: LEVOCARNITINE
     Indication: Anaemia
     Dosage: ONGOING
     Route: 042
     Dates: start: 2021
  7. PANTOPRAZOLE [Concomitant]
     Active Substance: PANTOPRAZOLE
     Indication: Anaemia
     Dosage: ONGOING
     Route: 048
     Dates: start: 2021
  8. SEVELAMER [Concomitant]
     Active Substance: SEVELAMER
     Indication: Hyperphosphataemia
     Dosage: ONGOING
     Route: 048
     Dates: start: 2021
  9. LEVOTHYROXINE [Concomitant]
     Active Substance: LEVOTHYROXINE
     Dosage: ONGOING
     Dates: start: 2021
  10. ALLOPURINOL [Concomitant]
     Active Substance: ALLOPURINOL
     Dosage: ONGOING
     Route: 048
     Dates: start: 2021

REACTIONS (2)
  - Serum ferritin increased [Unknown]
  - Colitis [Unknown]

NARRATIVE: CASE EVENT DATE: 20221215
